FAERS Safety Report 13996132 (Version 1)
Quarter: 2017Q3

REPORT INFORMATION
  Report Type: Spontaneous
  Country: US (occurrence: US)
  Receive Date: 20170921
  Receipt Date: 20170921
  Transmission Date: 20171128
  Serious: No
  Sender: FDA-Public Use
  Company Number: US-AMARIN PHARMA, INC.-2017AMR000109

PATIENT
  Age: 59 Year
  Sex: Male
  Weight: 80.36 kg

DRUGS (5)
  1. VASCEPA [Suspect]
     Active Substance: ICOSAPENT ETHYL
     Indication: BLOOD TRIGLYCERIDES
     Route: 048
     Dates: start: 201510
  2. ZETIA [Concomitant]
     Active Substance: EZETIMIBE
     Indication: BLOOD CHOLESTEROL INCREASED
     Route: 048
     Dates: start: 201611
  3. AMLODIPINE [Concomitant]
     Active Substance: AMLODIPINE BESYLATE
     Indication: HYPERTENSION
     Route: 048
     Dates: start: 201309
  4. OTC MIGRAINE MEDICATION [Concomitant]
     Indication: MIGRAINE
  5. ATORVASTATIN [Concomitant]
     Active Substance: ATORVASTATIN
     Indication: BLOOD CHOLESTEROL INCREASED
     Route: 048
     Dates: start: 201611

REACTIONS (5)
  - Product odour abnormal [Unknown]
  - Product container seal issue [Unknown]
  - Migraine [Recovering/Resolving]
  - Off label use [Recovered/Resolved]
  - Product coating issue [Unknown]

NARRATIVE: CASE EVENT DATE: 201310
